FAERS Safety Report 25109385 (Version 1)
Quarter: 2025Q1

REPORT INFORMATION
  Report Type: Report from Study
  Country: US (occurrence: US)
  Receive Date: 20250323
  Receipt Date: 20250323
  Transmission Date: 20250408
  Serious: Yes (Other)
  Sender: ALEXION PHARMACEUTICALS
  Company Number: US-ASTRAZENECA-202503USA017727US

PATIENT
  Age: 7 Year

DRUGS (1)
  1. STRENSIQ [Suspect]
     Active Substance: ASFOTASE ALFA
     Indication: Phosphorus metabolism disorder
     Dosage: 2 MILLIGRAM/KILOGRAM, TIW
     Route: 065

REACTIONS (5)
  - Leukaemia [Unknown]
  - Injection site pain [Unknown]
  - Incorrect dose administered [Unknown]
  - Skin tightness [Unknown]
  - Injection site haemorrhage [Unknown]
